FAERS Safety Report 11509626 (Version 1)
Quarter: 2015Q3

REPORT INFORMATION
  Report Type: Spontaneous
  Country: US (occurrence: US)
  Receive Date: 20150915
  Receipt Date: 20150915
  Transmission Date: 20151125
  Serious: No
  Sender: FDA-Public Use
  Company Number: US-JNJFOC-20150813125

PATIENT
  Age: 74 Year
  Sex: Female
  Weight: 50.8 kg

DRUGS (2)
  1. TYLENOL [Suspect]
     Active Substance: ACETAMINOPHEN
     Indication: FIBROMYALGIA
     Dosage: 2 PILLS, 2X PER DAY.
     Route: 048
  2. TYLENOL [Suspect]
     Active Substance: ACETAMINOPHEN
     Indication: RHEUMATOID ARTHRITIS
     Dosage: 2 PILLS, 2X PER DAY.
     Route: 048

REACTIONS (1)
  - Incorrect drug administration duration [Unknown]
